FAERS Safety Report 4562461-7 (Version None)
Quarter: 2005Q1

REPORT INFORMATION
  Report Type: 
  Country: None (occurrence: None)
  Receive Date: 20050121
  Receipt Date: 20050106
  Transmission Date: 20050727
  Serious: Yes (Hospitalization, Other)
  Sender: FDA-Public Use
  Company Number: JP_041105133

PATIENT
  Age: 31 Year
  Sex: Male
  Weight: 83 kg

DRUGS (15)
  1. ZYPREXA [Suspect]
     Indication: SCHIZOPHRENIA
     Dosage: 20 MG/1 DAY
     Dates: end: 20041101
  2. FLUVOXAMINE MALEATE [Concomitant]
  3. PAXIL [Concomitant]
  4. U-PAN (LORAZEPAM) [Concomitant]
  5. VITAMIN A [Concomitant]
  6. CLONAZEPAM [Concomitant]
  7. FLUNITRAZEPAM [Concomitant]
  8. DORAL [Concomitant]
  9. LEVOTOMIN (LEVOMEPROMAZINE MALEATE) [Concomitant]
  10. UNASYN [Concomitant]
  11. CLINDAMYCIN HCL [Concomitant]
  12. LOXONIN (LOXOPROFEN SODIUM) [Concomitant]
  13. NITRAZEPAM [Concomitant]
  14. AMOXICILLIN TRIHYDRATE [Concomitant]
  15. ROCEPHIN [Concomitant]

REACTIONS (2)
  - BLOOD CREATINE PHOSPHOKINASE INCREASED [None]
  - PERITONSILLAR ABSCESS [None]
